FAERS Safety Report 25615661 (Version 1)
Quarter: 2025Q3

REPORT INFORMATION
  Report Type: Spontaneous
  Country: EU (occurrence: EU)
  Receive Date: 20250729
  Receipt Date: 20250729
  Transmission Date: 20251021
  Serious: Yes (Other)
  Sender: SUNOVION
  Company Number: None

PATIENT

DRUGS (6)
  1. ORGOVYX [Suspect]
     Active Substance: RELUGOLIX
     Indication: Prostate cancer
     Dosage: NEED TO CONTINUE TREATMENT WITH CLOSE MONITORING, STRENGTH: 120 MG
     Route: 048
     Dates: start: 20250519
  2. ASPIRIN [Concomitant]
     Active Substance: ASPIRIN
     Dosage: IN THE MORNING
  3. HALCION [Concomitant]
     Active Substance: TRIAZOLAM
     Dosage: AT BEDTIME
  4. REPAGLINIDE [Concomitant]
     Active Substance: REPAGLINIDE
     Dosage: BEFORE LUNCH, STRENGTH: 1 MG
  5. ACETAMINOPHEN [Concomitant]
     Active Substance: ACETAMINOPHEN
     Dosage: STRENGTH: 1G
  6. TRAMADOL HYDROCHLORIDE [Concomitant]
     Active Substance: TRAMADOL HYDROCHLORIDE
     Dosage: STRENGTH: 100 MG PROLONGED-RELEASE CAPSULES, 1 CAPSULE IN THE MORNING AND 1 IN THE EVENING

REACTIONS (1)
  - Peripheral swelling [Not Recovered/Not Resolved]

NARRATIVE: CASE EVENT DATE: 20250520
